FAERS Safety Report 9405450 (Version 1)
Quarter: 2013Q3

REPORT INFORMATION
  Report Type: Spontaneous
  Country: GB (occurrence: None)
  Receive Date: 20130715
  Receipt Date: 20130715
  Transmission Date: 20140515
  Serious: Yes (Other)
  Sender: FDA-Public Use
  Company Number: 1788467

PATIENT
  Age: 69 Year
  Sex: Female
  Weight: 24.04 kg

DRUGS (5)
  1. (METHOTREXATE) [Suspect]
     Indication: RHEUMATOID ARTHRITIS
  2. TOCILIZUMAB [Suspect]
     Indication: RHEUMATOID ARTHRITIS
     Dosage: (NOT OTHERWISE SPECIFIED)
     Route: 042
     Dates: start: 20121204, end: 20130507
  3. FOLIC ACID [Concomitant]
  4. ALENDRONIC ACID [Concomitant]
  5. CALCIUM WITH VITAMIN D /00944201/ [Concomitant]

REACTIONS (3)
  - Drug interaction [None]
  - Neutropenia [None]
  - White blood cell count decreased [None]
